FAERS Safety Report 14346238 (Version 1)
Quarter: 2018Q1

REPORT INFORMATION
  Report Type: Spontaneous
  Country: US (occurrence: US)
  Receive Date: 20180103
  Receipt Date: 20180103
  Transmission Date: 20180509
  Serious: No
  Sender: FDA-Public Use
  Company Number: US-BAYER-2017-250857

PATIENT
  Age: 95 Year
  Sex: Female
  Weight: 65 kg

DRUGS (2)
  1. DULCOLAX PICOSULFAT [Concomitant]
     Active Substance: SODIUM PICOSULFATE
     Dosage: UNK
  2. MIRALAX [Suspect]
     Active Substance: POLYETHYLENE GLYCOL 3350
     Indication: PREOPERATIVE CARE
     Dosage: MIXING 238 GRAMS WITH 64 OUNCE GATORADE
     Route: 048

REACTIONS (4)
  - Wrong technique in product usage process [None]
  - Off label use [Unknown]
  - Incorrect dosage administered [None]
  - Product use in unapproved indication [Unknown]

NARRATIVE: CASE EVENT DATE: 201801
